FAERS Safety Report 6209184-6 (Version None)
Quarter: 2009Q2

REPORT INFORMATION
  Report Type: 
  Country: None (occurrence: None)
  Receive Date: 20090529
  Receipt Date: 20090522
  Transmission Date: 20091009
  Serious: Yes (Other)
  Sender: FDA-Public Use
  Company Number: TR-SP-2009-02252

PATIENT
  Age: 46 Year
  Sex: Male

DRUGS (1)
  1. BCG  THERAPEUTICS [Suspect]
     Indication: BLADDER CANCER
     Dosage: NOT REPORTED
     Route: 043

REACTIONS (6)
  - FATIGUE [None]
  - GRANULOMATOUS LIVER DISEASE [None]
  - HEPATOMEGALY [None]
  - HYPOTENSION [None]
  - NAUSEA [None]
  - PYREXIA [None]
